FAERS Safety Report 9554766 (Version 2)
Quarter: 2013Q4

REPORT INFORMATION
  Report Type: Spontaneous
  Country: US (occurrence: US)
  Receive Date: 20130926
  Receipt Date: 20131011
  Transmission Date: 20140711
  Serious: Yes (Hospitalization)
  Sender: FDA-Public Use
  Company Number: US-BIOGENIDEC-2013BI090547

PATIENT
  Age: 45 Year
  Sex: Male

DRUGS (1)
  1. TYSABRI [Suspect]
     Indication: MULTIPLE SCLEROSIS
     Route: 042
     Dates: start: 20130502

REACTIONS (5)
  - Fall [Recovered/Resolved]
  - Hip fracture [Unknown]
  - Peroneal nerve palsy [Unknown]
  - Fatigue [Not Recovered/Not Resolved]
  - Confusional state [Unknown]
